FAERS Safety Report 6609980-7 (Version None)
Quarter: 2010Q1

REPORT INFORMATION
  Report Type: 
  Country: None (occurrence: None)
  Receive Date: 20100302
  Receipt Date: 20100224
  Transmission Date: 20100710
  Serious: Yes (Death)
  Sender: FDA-Public Use
  Company Number: JP-SANOFI-AVENTIS-2010SA010761

PATIENT
  Age: 65 Year
  Sex: Male
  Weight: 62.6 kg

DRUGS (17)
  1. PLAVIX [Suspect]
     Route: 048
     Dates: start: 20091009
  2. ASPIRIN [Concomitant]
     Route: 048
     Dates: start: 20091009
  3. HEPARIN [Concomitant]
     Dosage: DOSE:12000 UNIT(S)
     Route: 042
     Dates: start: 20091009, end: 20091014
  4. NICORANDIL [Concomitant]
     Route: 065
     Dates: start: 20091009, end: 20091009
  5. NICORANDIL [Concomitant]
     Route: 065
     Dates: start: 20091010, end: 20091011
  6. NICORANDIL [Concomitant]
     Route: 065
     Dates: start: 20091012, end: 20091012
  7. NICORANDIL [Concomitant]
     Route: 065
     Dates: start: 20091013, end: 20091013
  8. NICORANDIL [Concomitant]
     Route: 065
     Dates: start: 20091014, end: 20091014
  9. NICORANDIL [Concomitant]
     Route: 065
     Dates: start: 20091015, end: 20091015
  10. NICORANDIL [Concomitant]
     Route: 065
     Dates: start: 20091016
  11. PERINDOPRIL [Concomitant]
     Route: 048
     Dates: start: 20091009, end: 20091009
  12. PERINDOPRIL [Concomitant]
     Route: 048
     Dates: start: 20091010
  13. FLUVASTATIN [Concomitant]
     Route: 048
     Dates: start: 20091009
  14. FUROSEMIDE [Concomitant]
     Route: 051
     Dates: start: 20091010, end: 20091011
  15. FUROSEMIDE [Concomitant]
     Route: 051
     Dates: start: 20091013, end: 20091015
  16. CEFAZOLIN SODIUM [Concomitant]
     Route: 048
     Dates: start: 20091009, end: 20091010
  17. CEFAZOLIN SODIUM [Concomitant]
     Route: 048
     Dates: start: 20091012, end: 20091013

REACTIONS (1)
  - DEATH [None]
